FAERS Safety Report 10051628 (Version 1)
Quarter: 2014Q2

REPORT INFORMATION
  Report Type: Report from Study
  Country: GB (occurrence: GB)
  Receive Date: 20140401
  Receipt Date: 20140401
  Transmission Date: 20141212
  Serious: Yes (Life-Threatening)
  Sender: FDA-Public Use
  Company Number: CHPA2014GB004603

PATIENT
  Sex: Male

DRUGS (1)
  1. OTRIVINE ADULT MEASURED DOSE SINUSITIS SPRAY [Suspect]

REACTIONS (2)
  - Feeling abnormal [Unknown]
  - Drug ineffective [Unknown]
